FAERS Safety Report 18771204 (Version 1)
Quarter: 2021Q1

REPORT INFORMATION
  Report Type: Spontaneous
  Country: US (occurrence: US)
  Receive Date: 20210121
  Receipt Date: 20210121
  Transmission Date: 20210419
  Serious: Yes (Hospitalization)
  Sender: FDA-Public Use
  Company Number: US-TEVA-2021-US-1869991

PATIENT
  Age: 68 Year
  Sex: Male

DRUGS (4)
  1. NS [Suspect]
     Active Substance: SODIUM CHLORIDE
     Indication: ORTHOSTATIC HYPOTENSION
     Route: 042
  2. TACROLIMUS. [Suspect]
     Active Substance: TACROLIMUS
     Indication: IMMUNOSUPPRESSANT DRUG THERAPY
     Route: 065
  3. MYCOPHENOLATE [Suspect]
     Active Substance: MYCOPHENOLIC ACID
     Indication: IMMUNOSUPPRESSANT DRUG THERAPY
     Route: 065
  4. IBRUTINIB [Suspect]
     Active Substance: IBRUTINIB
     Indication: CHRONIC LYMPHOCYTIC LEUKAEMIA
     Route: 065

REACTIONS (4)
  - Treatment failure [Unknown]
  - Richter^s syndrome [Recovering/Resolving]
  - Diffuse large B-cell lymphoma [Recovering/Resolving]
  - Blood creatinine increased [Recovered/Resolved]
